FAERS Safety Report 9482555 (Version 1)
Quarter: 2013Q3

REPORT INFORMATION
  Report Type: Spontaneous
  Country: US (occurrence: US)
  Receive Date: 20130828
  Receipt Date: 20130828
  Transmission Date: 20140515
  Serious: Yes (Other)
  Sender: FDA-Public Use
  Company Number: US-TEVA-428838USA

PATIENT
  Age: 23 Year
  Sex: Female
  Weight: 54.48 kg

DRUGS (1)
  1. PARAGARD 380A [Suspect]
     Indication: CONTRACEPTION
     Route: 015
     Dates: start: 2011

REACTIONS (5)
  - Pregnancy with contraceptive device [Not Recovered/Not Resolved]
  - Drug ineffective [Not Recovered/Not Resolved]
  - Device dislocation [Not Recovered/Not Resolved]
  - Dizziness [Not Recovered/Not Resolved]
  - Abdominal pain lower [Not Recovered/Not Resolved]
